FAERS Safety Report 15482684 (Version 1)
Quarter: 2018Q4

REPORT INFORMATION
  Report Type: Spontaneous
  Country: US (occurrence: US)
  Receive Date: 20181003
  Receipt Date: 20181003
  Transmission Date: 20190205
  Serious: No
  Sender: FDA-Public Use
  Company Number: None

PATIENT
  Age: 25 Year
  Sex: Female
  Weight: 54 kg

DRUGS (1)
  1. CLARAVIS [Suspect]
     Active Substance: ISOTRETINOIN
     Indication: ACNE
     Route: 048
     Dates: start: 20171015, end: 20180615

REACTIONS (4)
  - Rash erythematous [None]
  - Seborrhoea [None]
  - Rash [None]
  - Skin irritation [None]

NARRATIVE: CASE EVENT DATE: 20181002
